FAERS Safety Report 17056801 (Version 2)
Quarter: 2019Q4

REPORT INFORMATION
  Report Type: Spontaneous
  Country: IT (occurrence: IT)
  Receive Date: 20191121
  Receipt Date: 20191121
  Transmission Date: 20200122
  Serious: Yes (Other)
  Sender: FDA-Public Use
  Company Number: IT-AUROBINDO-AUR-APL-2019-074113

PATIENT
  Age: 1 Year
  Sex: Female
  Weight: 8 kg

DRUGS (1)
  1. AMOXICILLIN. [Suspect]
     Active Substance: AMOXICILLIN
     Indication: PHARYNGITIS
     Dosage: 1 DOSAGE FORM, ONCE A DAY
     Route: 048
     Dates: start: 20191020, end: 20191025

REACTIONS (2)
  - Periorbital oedema [Unknown]
  - Urticaria [Unknown]

NARRATIVE: CASE EVENT DATE: 20191025
